FAERS Safety Report 18311486 (Version 1)
Quarter: 2020Q3

REPORT INFORMATION
  Report Type: Spontaneous
  Country: US (occurrence: US)
  Receive Date: 20200924
  Receipt Date: 20200924
  Transmission Date: 20201103
  Serious: Yes (Life-Threatening, Hospitalization, Disabling, Other)
  Sender: FDA-Public Use
  Company Number: None

PATIENT
  Age: 74 Year
  Sex: Male
  Weight: 54 kg

DRUGS (1)
  1. RIFAMPIN. [Suspect]
     Active Substance: RIFAMPIN
     Indication: MYCOBACTERIAL INFECTION
     Dosage: ?          OTHER FREQUENCY:EVERY OTHER DAY;?
     Route: 048
     Dates: start: 20200818, end: 20200824

REACTIONS (5)
  - Lung disorder [None]
  - Near death experience [None]
  - Hepatic failure [None]
  - Deafness [None]
  - Renal failure [None]

NARRATIVE: CASE EVENT DATE: 20200824
